FAERS Safety Report 26105678 (Version 2)
Quarter: 2025Q4

REPORT INFORMATION
  Report Type: Spontaneous
  Country: EU (occurrence: EU)
  Receive Date: 20251201
  Receipt Date: 20251217
  Transmission Date: 20260118
  Serious: Yes (Hospitalization, Other)
  Sender: AUROBINDO
  Company Number: EU-ABBVIE-6525552

PATIENT
  Age: 69 Year
  Sex: Female

DRUGS (7)
  1. CLOZAPINE [Suspect]
     Active Substance: CLOZAPINE
     Indication: Hallucination
     Dosage: 12 MILLIGRAM
     Route: 061
  2. FOSCARBIDOPA\FOSLEVODOPA [Suspect]
     Active Substance: FOSCARBIDOPA\FOSLEVODOPA
     Indication: Parkinson^s disease
     Dosage: DOSAGE: CRN: 0.16 ML/H, CR: 0.18 ML/H, CRH: 0.20 ML/H, ED: 0.10 ML,LAST ADMIN: OCT 2025
  3. FOSCARBIDOPA\FOSLEVODOPA [Suspect]
     Active Substance: FOSCARBIDOPA\FOSLEVODOPA
     Dosage: DOSAGE: CRN: 0.16 ML/H, CR: 0.20 ML/H, CRH: 0.22 ML/H, ED: 0.10ML,FIRST AND LAST ADMINISTRATION DATE: 2025
  4. FOSCARBIDOPA\FOSLEVODOPA [Suspect]
     Active Substance: FOSCARBIDOPA\FOSLEVODOPA
     Dosage: DOSAGE: CR: 0.24ML/H, CRH: 0.26ML/H, CRN: 0.16ML/H,FIRST AND LAST ADMINISTRATION DATE: 2025
  5. FOSCARBIDOPA\FOSLEVODOPA [Suspect]
     Active Substance: FOSCARBIDOPA\FOSLEVODOPA
     Dosage: DOSAGE: CRN: 0.16 ML/H, CR: 0.20 ML/H, CRH: 0.22 ML/H, ED: 0.10 ML,LAST ADMIN: OCT 2025
  6. FOSCARBIDOPA\FOSLEVODOPA [Suspect]
     Active Substance: FOSCARBIDOPA\FOSLEVODOPA
     Dosage: DOSAGE: CR: 0.30 ML/H, CRN: 0.24 ML/H, CRH: 0.32 ML/H, ED: 0.15 ML,FIRST ADMINISTRATION DATE: 2025
  7. CLONAZEPAM [Suspect]
     Active Substance: CLONAZEPAM
     Indication: Restlessness
     Dosage: 5 MILLIGRAM
     Route: 061

REACTIONS (10)
  - Salivary hypersecretion [Not Recovered/Not Resolved]
  - On and off phenomenon [Not Recovered/Not Resolved]
  - Musculoskeletal stiffness [Not Recovered/Not Resolved]
  - General physical health deterioration [Not Recovered/Not Resolved]
  - Hallucination [Unknown]
  - Affect lability [Not Recovered/Not Resolved]
  - Movement disorder [Not Recovered/Not Resolved]
  - Mobility decreased [Not Recovered/Not Resolved]
  - Infusion site inflammation [Not Recovered/Not Resolved]
  - Therapeutic product effect incomplete [Unknown]

NARRATIVE: CASE EVENT DATE: 20250101
